FAERS Safety Report 9583730 (Version 1)
Quarter: 2013Q4

REPORT INFORMATION
  Report Type: Spontaneous
  Country: US (occurrence: US)
  Receive Date: 20131002
  Receipt Date: 20131002
  Transmission Date: 20140711
  Serious: No
  Sender: FDA-Public Use
  Company Number: US-AMGEN-USASP2013049082

PATIENT
  Age: 60 Year
  Sex: Female
  Weight: 59.86 kg

DRUGS (8)
  1. ENBREL [Suspect]
     Indication: PRODUCT USED FOR UNKNOWN INDICATION
     Dosage: 50 MG, QWK
     Route: 058
  2. PLAQUENIL                          /00072602/ [Concomitant]
     Dosage: 200 MG, UNK
  3. LEVOTHYROXIN [Concomitant]
     Dosage: 50 MUG, UNK
  4. PREVACID [Concomitant]
     Dosage: 30 MG, UNK
  5. VERAPAMIL [Concomitant]
     Dosage: 100 MG, UNK
  6. METHOTREXATE [Concomitant]
     Dosage: 50 MG PER 2ML, UNK
  7. CALCIUM +D                         /00944201/ [Concomitant]
     Dosage: UNK
  8. FOLIC ACID [Concomitant]
     Dosage: UNK

REACTIONS (3)
  - Headache [Unknown]
  - Erythema [Unknown]
  - Fatigue [Unknown]
